FAERS Safety Report 21651348 (Version 1)
Quarter: 2022Q4

REPORT INFORMATION
  Report Type: Spontaneous
  Country: US (occurrence: None)
  Receive Date: 20221127
  Receipt Date: 20221127
  Transmission Date: 20230113
  Serious: Yes (Other)
  Sender: FDA-Public Use
  Company Number: None

PATIENT
  Age: 55 Year
  Sex: Female
  Weight: 81 kg

DRUGS (1)
  1. CREST GUM DETOXIFY [Suspect]
     Active Substance: STANNOUS FLUORIDE
     Indication: Gingival discomfort
     Dosage: OTHER QUANTITY : 1 DAB;?FREQUENCY : TWICE A DAY;?OTHER ROUTE : BRUSHED TEETH;?
     Route: 050

REACTIONS (4)
  - Burn oral cavity [None]
  - Gingival discomfort [None]
  - Chemical burn of oral cavity [None]
  - Dyspepsia [None]

NARRATIVE: CASE EVENT DATE: 20221124
